FAERS Safety Report 15307359 (Version 2)
Quarter: 2018Q4

REPORT INFORMATION
  Report Type: Spontaneous
  Country: JP (occurrence: JP)
  Receive Date: 20180822
  Receipt Date: 20180911
  Transmission Date: 20190204
  Serious: No
  Sender: FDA-Public Use
  Company Number: JP-TEVA-2018-JP-946797

PATIENT
  Age: 8 Decade
  Sex: Male

DRUGS (5)
  1. TRERIEF [Concomitant]
     Active Substance: ZONISAMIDE
  2. NEUPRO [Concomitant]
     Active Substance: ROTIGOTINE
     Route: 062
  3. HALCION [Concomitant]
     Active Substance: TRIAZOLAM
  4. STALEVO [Concomitant]
     Active Substance: CARBIDOPA\ENTACAPONE\LEVODOPA
  5. AZILECT [Suspect]
     Active Substance: RASAGILINE MESYLATE
     Indication: PARKINSON^S DISEASE
     Route: 048
     Dates: start: 20180725, end: 20180808

REACTIONS (1)
  - Pollakiuria [Unknown]

NARRATIVE: CASE EVENT DATE: 201807
